FAERS Safety Report 15723954 (Version 2)
Quarter: 2018Q4

REPORT INFORMATION
  Report Type: Report from Study
  Country: US (occurrence: US)
  Receive Date: 20181214
  Receipt Date: 20181221
  Transmission Date: 20190205
  Serious: No
  Sender: FDA-Public Use
  Company Number: US-ALEXION PHARMACEUTICALS INC.-A201816364

PATIENT
  Sex: Male

DRUGS (1)
  1. SOLIRIS [Suspect]
     Active Substance: ECULIZUMAB
     Indication: PAROXYSMAL NOCTURNAL HAEMOGLOBINURIA
     Route: 065

REACTIONS (7)
  - Inappropriate schedule of product administration [Unknown]
  - Blood urine present [Unknown]
  - Oropharyngeal spasm [Unknown]
  - Oropharyngeal pain [Unknown]
  - General symptom [Unknown]
  - Renal pain [Unknown]
  - Fatigue [Unknown]
